FAERS Safety Report 6371635-4 (Version None)
Quarter: 2009Q3

REPORT INFORMATION
  Report Type: 
  Country: None (occurrence: None)
  Receive Date: 20090923
  Receipt Date: 20080728
  Transmission Date: 20100115
  Serious: No
  Sender: FDA-Public Use
  Company Number: US-ASTRAZENECA-2008UW14668

PATIENT

DRUGS (7)
  1. SEROQUEL [Suspect]
     Indication: BIPOLAR DISORDER
     Route: 048
  2. SEROQUEL [Suspect]
     Indication: SEDATION
     Route: 048
  3. LAMICTAL [Concomitant]
  4. AVINZA [Concomitant]
  5. PERCOCET [Concomitant]
  6. NEURONTIN [Concomitant]
  7. XANAX [Concomitant]

REACTIONS (1)
  - ACTIVITIES OF DAILY LIVING IMPAIRED [None]
